FAERS Safety Report 5296374-2 (Version None)
Quarter: 2007Q2

REPORT INFORMATION
  Report Type: 
  Country: None (occurrence: None)
  Receive Date: 20070413
  Receipt Date: 20070403
  Transmission Date: 20071010
  Serious: Yes (Hospitalization)
  Sender: FDA-Public Use
  Company Number: JP-ROCHE-486163

PATIENT
  Age: 6 Year
  Sex: Female
  Weight: 23 kg

DRUGS (7)
  1. TAMIFLU [Suspect]
     Indication: PHARYNGITIS
     Route: 048
     Dates: start: 20070227, end: 20070227
  2. MEIACT [Concomitant]
     Dosage: GENERIC REPORTED AS CEFDITOREN PIVOXIL FORM:FINE GRANULE
     Route: 048
     Dates: start: 20070227, end: 20070227
  3. BIOFERMIN [Concomitant]
     Route: 048
     Dates: start: 20070227
  4. TRANSAMIN [Concomitant]
     Route: 048
     Dates: start: 20070227, end: 20070227
  5. ASVERIN [Concomitant]
     Dosage: GENERIC REPORTED AS TIPEPIDINE HIBENZATE
     Route: 048
     Dates: start: 20070227, end: 20070227
  6. MUCOSAL [Concomitant]
     Dosage: GENERIC REPORTED AS AMBROXOL HYDROCHLORIDE
     Route: 048
     Dates: start: 20070227, end: 20070227
  7. CALONAL [Concomitant]
     Dosage: GENERIC REPORTED AS ACETAMINOPHEN FORM:FINE GRANULE
     Route: 048
     Dates: start: 20070227, end: 20070227

REACTIONS (2)
  - ABNORMAL BEHAVIOUR [None]
  - DEPRESSED LEVEL OF CONSCIOUSNESS [None]
